FAERS Safety Report 25811553 (Version 3)
Quarter: 2025Q4

REPORT INFORMATION
  Report Type: Spontaneous
  Country: EU (occurrence: EU)
  Receive Date: 20250917
  Receipt Date: 20251009
  Transmission Date: 20260118
  Serious: Yes (Congenital Anomaly)
  Sender: TEVA
  Company Number: None

PATIENT
  Age: 1 Day
  Sex: Male
  Weight: 3.5 kg

DRUGS (5)
  1. METOCLOPRAMIDE [Suspect]
     Active Substance: METOCLOPRAMIDE
     Indication: Morning sickness
     Dosage: 1 PIECE 3 TIMES A DAY, BRAND NAME NOT SPECIFIED
     Route: 064
     Dates: start: 20241128
  2. SYMBICORT [Suspect]
     Active Substance: BUDESONIDE\FORMOTEROL FUMARATE DIHYDRATE
     Indication: Asthma
     Dosage: 2 X 1 DOSE PER DAY 100/3MCG/DOSE, AEROSOL
     Route: 064
     Dates: start: 20100101
  3. ZOFRAN [Suspect]
     Active Substance: ONDANSETRON HYDROCHLORIDE
     Indication: Morning sickness
     Dosage: 1 PIECE 3 TIMES A DAY
     Route: 064
     Dates: start: 20241217
  4. PANTOPRAZOLE [Suspect]
     Active Substance: PANTOPRAZOLE
     Indication: Dyspepsia
     Dosage: 1 TO 2 PIECES PER DAY, PANTOPRAZOL HTP
     Route: 064
     Dates: start: 20240501
  5. CITALOPRAM [Suspect]
     Active Substance: CITALOPRAM
     Indication: Anxiety
     Dosage: BRAND NAME NOT SPECIFIED ONCE A DAY
     Route: 064
     Dates: start: 20230101

REACTIONS (2)
  - Urethral valves [Not Recovered/Not Resolved]
  - Maternal exposure during pregnancy [Unknown]

NARRATIVE: CASE EVENT DATE: 20250701
